FAERS Safety Report 12471356 (Version 1)
Quarter: 2016Q2

REPORT INFORMATION
  Report Type: Spontaneous
  Country: US (occurrence: US)
  Receive Date: 20160616
  Receipt Date: 20160616
  Transmission Date: 20160815
  Serious: No
  Sender: FDA-Public Use
  Company Number: US-PFIZER INC-2016297005

PATIENT
  Age: 60 Year
  Sex: Female

DRUGS (1)
  1. ESTRING [Suspect]
     Active Substance: ESTRADIOL
     Indication: VULVOVAGINAL DRYNESS
     Dosage: 1 DF, EVERY 3 MONTHS
     Dates: start: 201512

REACTIONS (2)
  - Vulvovaginal pain [Not Recovered/Not Resolved]
  - Product difficult to remove [Not Recovered/Not Resolved]
